FAERS Safety Report 11547387 (Version 1)
Quarter: 2015Q3

REPORT INFORMATION
  Report Type: Spontaneous
  Country: US (occurrence: US)
  Receive Date: 20150903
  Receipt Date: 20150903
  Transmission Date: 20151125
  Serious: No
  Sender: FDA-Public Use
  Company Number: US-ELI_LILLY_AND_COMPANY-US201102002007

PATIENT
  Age: 55 Year
  Sex: Male

DRUGS (2)
  1. LANTUS [Concomitant]
     Active Substance: INSULIN GLARGINE
     Indication: TYPE 2 DIABETES MELLITUS
     Dosage: 35 U, DAILY (1/D)
     Route: 058
     Dates: start: 201101, end: 20110121
  2. HUMALOG [Suspect]
     Active Substance: INSULIN LISPRO
     Indication: TYPE 2 DIABETES MELLITUS
     Dosage: 15 U, UNKNOWN
     Dates: start: 201101

REACTIONS (3)
  - Visual acuity reduced [Unknown]
  - Blood glucose decreased [Unknown]
  - Rash [Unknown]

NARRATIVE: CASE EVENT DATE: 20110121
